FAERS Safety Report 8588918-X (Version None)
Quarter: 2012Q3

REPORT INFORMATION
  Report Type: 
  Country: None (occurrence: None)
  Receive Date: 20120813
  Receipt Date: 20120806
  Transmission Date: 20120928
  Serious: Yes (Other)
  Sender: FDA-Public Use
  Company Number: JP-VERTEX PHARMACEUTICALS INC.-AE-2012-011847

PATIENT
  Age: 65 Year
  Sex: Male

DRUGS (8)
  1. LOXONIN [Concomitant]
     Route: 048
     Dates: start: 20120605
  2. TELAVIC (TELAPREVIR) [Suspect]
     Indication: HEPATITIS C
     Route: 048
     Dates: start: 20120605, end: 20120625
  3. TELAVIC (TELAPREVIR) [Suspect]
     Route: 048
     Dates: start: 20120626
  4. RIBAVIRIN [Concomitant]
     Indication: HEPATITIS C
     Route: 048
     Dates: start: 20120605, end: 20120625
  5. RIBAVIRIN [Concomitant]
     Route: 048
     Dates: start: 20120626, end: 20120710
  6. PEGINTERFERON ALFA-2B [Concomitant]
     Route: 058
     Dates: start: 20120605
  7. FAMOTIDINE [Concomitant]
     Route: 048
     Dates: start: 20120605
  8. ROHYPNOL [Concomitant]
     Route: 048
     Dates: start: 20120626

REACTIONS (1)
  - RENAL IMPAIRMENT [None]
